FAERS Safety Report 4436689-0 (Version None)
Quarter: 2004Q3

REPORT INFORMATION
  Report Type: 
  Country: None (occurrence: None)
  Receive Date: 20040830
  Receipt Date: 20040820
  Transmission Date: 20050211
  Serious: Yes (Death)
  Sender: FDA-Public Use
  Company Number: US-BRISTOL-MYERS SQUIBB COMPANY-12679247

PATIENT
  Age: 80 Year
  Sex: Male

DRUGS (1)
  1. ENKAID [Suspect]
     Dosage: CAPSULES
     Route: 048

REACTIONS (2)
  - LEUKAEMIA [None]
  - RESPIRATORY FAILURE [None]
